FAERS Safety Report 10969645 (Version 1)
Quarter: 2015Q1

REPORT INFORMATION
  Report Type: Report from Study
  Country: AU (occurrence: AU)
  Receive Date: 20150331
  Receipt Date: 20150331
  Transmission Date: 20150721
  Serious: Yes (Other)
  Sender: FDA-Public Use
  Company Number: AU-ROCHE-1558245

PATIENT
  Age: 56 Year
  Sex: Female

DRUGS (6)
  1. ACTEMRA [Suspect]
     Active Substance: TOCILIZUMAB
     Indication: RHEUMATOID ARTHRITIS
     Route: 042
     Dates: start: 20130917
  2. PANADEINE FORTE [Concomitant]
     Active Substance: ACETAMINOPHEN\CODEINE PHOSPHATE
     Route: 065
  3. VALDOXAN [Concomitant]
     Active Substance: AGOMELATINE
     Indication: SLEEP DISORDER
     Route: 048
     Dates: start: 2015
  4. VALIUM [Concomitant]
     Active Substance: DIAZEPAM
     Dosage: AT NIGHT
     Route: 065
  5. IMMUNOGLOBULIN IV [Suspect]
     Active Substance: HUMAN IMMUNOGLOBULIN G
     Indication: MYOPATHY
     Route: 042
     Dates: end: 2014
  6. THYROXIN [Concomitant]
     Active Substance: LEVOTHYROXINE
     Indication: THYROID DISORDER
     Dosage: ONGOING
     Route: 048
     Dates: start: 2008

REACTIONS (1)
  - Chest pain [Recovered/Resolved]

NARRATIVE: CASE EVENT DATE: 20150323
